FAERS Safety Report 22352609 (Version 2)
Quarter: 2023Q2

REPORT INFORMATION
  Report Type: Spontaneous
  Country: CN (occurrence: CN)
  Receive Date: 20230523
  Receipt Date: 20230526
  Transmission Date: 20230721
  Serious: Yes (Other)
  Sender: FDA-Public Use
  Company Number: CN-BEH-2023158850

PATIENT
  Age: 56 Year
  Sex: Female
  Weight: 55 kg

DRUGS (8)
  1. ALBURX [Suspect]
     Active Substance: ALBUMIN HUMAN
     Indication: Nutritional supplementation
     Dosage: 10 GRAM, OD
     Route: 041
     Dates: start: 20230421, end: 20230422
  2. SOMATOSTATIN [Suspect]
     Active Substance: SOMATOSTATIN
     Indication: Pancreatitis acute
     Dosage: 3 MILLIGRAM, OD
     Route: 041
     Dates: start: 20230420, end: 20230420
  3. SOMATOSTATIN [Suspect]
     Active Substance: SOMATOSTATIN
     Dosage: 3 MILLIGRAM, BID
     Route: 065
     Dates: start: 20230421, end: 20230422
  4. MEROPENEM [Suspect]
     Active Substance: MEROPENEM
     Indication: Infection
     Dosage: 1 GRAM, TID
     Route: 041
     Dates: start: 20230420, end: 20230422
  5. VITAMIN K1 [Suspect]
     Active Substance: PHYTONADIONE
     Indication: Coagulopathy
     Dosage: 10 MILLIGRAM, BID
     Route: 030
     Dates: start: 20230420, end: 20230422
  6. VITAMIN K1 [Suspect]
     Active Substance: PHYTONADIONE
     Dosage: 10 MILLIGRAM, OD
     Route: 030
     Dates: start: 20230420
  7. SODIUM CHLORIDE [Concomitant]
     Active Substance: SODIUM CHLORIDE
     Indication: Vehicle solution use
     Dosage: 250 MILLILITER, OD
     Route: 041
     Dates: start: 20230420, end: 20230420
  8. SODIUM CHLORIDE [Concomitant]
     Active Substance: SODIUM CHLORIDE
     Dosage: 100 MILLILITER, TID
     Route: 041
     Dates: start: 20230420, end: 20230422

REACTIONS (15)
  - Dermatitis allergic [Recovering/Resolving]
  - Mechanical urticaria [Recovering/Resolving]
  - Rash erythematous [Recovering/Resolving]
  - Pruritus [Recovering/Resolving]
  - Erythema [Recovering/Resolving]
  - Papule [Recovering/Resolving]
  - Scab [Recovering/Resolving]
  - Pruritus [Recovering/Resolving]
  - Oedema [Recovering/Resolving]
  - Rash [Recovering/Resolving]
  - Unresponsive to stimuli [Unknown]
  - Hypersensitivity [Recovering/Resolving]
  - Chest discomfort [Recovering/Resolving]
  - Nausea [Recovering/Resolving]
  - Rash [Recovering/Resolving]

NARRATIVE: CASE EVENT DATE: 20230422
